FAERS Safety Report 5592619-X (Version None)
Quarter: 2007Q4

REPORT INFORMATION
  Report Type: 
  Country: None (occurrence: None)
  Receive Date: 20071218
  Receipt Date: 20061229
  Transmission Date: 20080405
  Serious: Yes (Hospitalization, Other)
  Sender: FDA-Public Use
  Company Number: 2005075343

PATIENT
  Age: 57 Year
  Sex: Female

DRUGS (3)
  1. BEXTRA [Suspect]
     Indication: ARTHRITIS
     Dosage: 20 MG (20 MG1 IN 1 D)
     Dates: start: 20040101, end: 20041001
  2. BEXTRA [Suspect]
     Indication: INFLAMMATION
     Dosage: 20 MG (20 MG1 IN 1 D)
     Dates: start: 20040101, end: 20041001
  3. BEXTRA [Suspect]
     Indication: PAIN
     Dosage: 20 MG (20 MG1 IN 1 D)
     Dates: start: 20040101, end: 20041001

REACTIONS (4)
  - DYSPNOEA [None]
  - FATIGUE [None]
  - MOVEMENT DISORDER [None]
  - MYOCARDIAL INFARCTION [None]
